FAERS Safety Report 7086212-X (Version None)
Quarter: 2010Q4

REPORT INFORMATION
  Report Type: 
  Country: None (occurrence: None)
  Receive Date: 20101027
  Receipt Date: 20101020
  Transmission Date: 20110411
  Serious: Yes (Hospitalization, Other)
  Sender: FDA-Public Use
  Company Number: DSA_43630_2010

PATIENT
  Sex: Male

DRUGS (11)
  1. XENAZINE [Suspect]
     Indication: DYSTONIA
     Dosage: (25 MG TID ORAL), (DF ORAL)
     Route: 048
     Dates: start: 20100113, end: 20100801
  2. CARAFATE [Suspect]
     Indication: PRODUCT USED FOR UNKNOWN INDICATION
     Dosage: (4 TIMES A DAY)
  3. CLONAZEPAM [Concomitant]
  4. CITALOPRAM [Concomitant]
  5. DILAUDID [Concomitant]
  6. ROBAXIN [Concomitant]
  7. BUSPIRONE HCL [Concomitant]
  8. LISINOPRIL [Concomitant]
  9. LEVOTHYROXINE SODIUM [Concomitant]
  10. PROTONIX [Concomitant]
  11. ROZEREM [Concomitant]

REACTIONS (7)
  - CEREBROVASCULAR ACCIDENT [None]
  - DEPRESSION [None]
  - DRUG INEFFECTIVE [None]
  - IRRITABILITY [None]
  - MIDDLE INSOMNIA [None]
  - RASH [None]
  - SUICIDAL IDEATION [None]
